FAERS Safety Report 6402641-9 (Version None)
Quarter: 2009Q4

REPORT INFORMATION
  Report Type: 
  Country: None (occurrence: None)
  Receive Date: 20091009
  Receipt Date: 20090930
  Transmission Date: 20100525
  Serious: Yes (Other)
  Sender: FDA-Public Use
  Company Number: ADR35552009

PATIENT
  Age: 2 Year
  Sex: Female

DRUGS (1)
  1. CIPROFLOXACIN HYDROCHLORIDE [Suspect]
     Indication: LOWER RESPIRATORY TRACT INFECTION
     Dosage: ORAL
     Route: 048
     Dates: start: 20080701

REACTIONS (4)
  - JOINT SWELLING [None]
  - SYNOVITIS [None]
  - WEIGHT BEARING DIFFICULTY [None]
  - WEIGHT GAIN POOR [None]
